FAERS Safety Report 6969050-5 (Version None)
Quarter: 2010Q3

REPORT INFORMATION
  Report Type: 
  Country: None (occurrence: None)
  Receive Date: 20100903
  Receipt Date: 20100903
  Transmission Date: 20110219
  Serious: Yes (Death)
  Sender: FDA-Public Use
  Company Number: None

PATIENT
  Age: 20 Year
  Sex: Female
  Weight: 74.8435 kg

DRUGS (2)
  1. YAZ [Suspect]
  2. ORTHO CYCLEN-28 [Suspect]

REACTIONS (1)
  - PULMONARY EMBOLISM [None]
